FAERS Safety Report 25878645 (Version 2)
Quarter: 2025Q4

REPORT INFORMATION
  Report Type: Spontaneous
  Country: US (occurrence: US)
  Receive Date: 20251003
  Receipt Date: 20251015
  Transmission Date: 20260117
  Serious: Yes (Life-Threatening, Hospitalization, Other)
  Sender: LUNDBECK
  Company Number: US-LUNDBECK-DKLU4020035

PATIENT
  Age: 4 Month
  Sex: Male

DRUGS (3)
  1. VIGABATRIN [Suspect]
     Active Substance: VIGABATRIN
     Indication: Infantile spasms
     Dosage: 48 MG/KG/D DIVIDED TWICE DAILY
  2. VIGABATRIN [Suspect]
     Active Substance: VIGABATRIN
     Dosage: THEN 48 MG/KG/D DIVIDED THREE TIMES DAILY
  3. VIGABATRIN [Suspect]
     Active Substance: VIGABATRIN
     Dosage: THEN 108 MG/KG/D DIVIDED THREE TIMES DAILY

REACTIONS (2)
  - Hydrocephalus [Recovering/Resolving]
  - Magnetic resonance imaging head abnormal [Recovering/Resolving]
